FAERS Safety Report 4680875-1 (Version None)
Quarter: 2005Q2

REPORT INFORMATION
  Report Type: 
  Country: None (occurrence: None)
  Receive Date: 20050603
  Receipt Date: 20050518
  Transmission Date: 20051028
  Serious: Yes (Hospitalization)
  Sender: FDA-Public Use
  Company Number: PHBS2005JP07330

PATIENT
  Age: 75 Year

DRUGS (2)
  1. DIOVAN [Suspect]
     Indication: HYPERTENSION
     Dosage: 80 MG, BID
     Route: 048
     Dates: start: 20040712, end: 20050524
  2. DEPAS [Suspect]
     Indication: TINNITUS
     Dosage: 0.5 MG, BID
     Route: 048
     Dates: start: 20040809, end: 20050518

REACTIONS (6)
  - FALL [None]
  - GAIT DISTURBANCE [None]
  - HOT FLUSH [None]
  - MOVEMENT DISORDER [None]
  - MUSCULOSKELETAL STIFFNESS [None]
  - PALPITATIONS [None]
